FAERS Safety Report 10011587 (Version 1)
Quarter: 2014Q1

REPORT INFORMATION
  Report Type: Spontaneous
  Country: US (occurrence: US)
  Receive Date: 20140314
  Receipt Date: 20140314
  Transmission Date: 20141002
  Serious: No
  Sender: FDA-Public Use
  Company Number: US-B.I. PHARMACEUTICALS,INC./RIDGEFIELD-2014-BI-09884BP

PATIENT
  Age: 54 Year
  Sex: Male

DRUGS (5)
  1. ATROVENT INHALATION SOLUTION [Suspect]
     Indication: CHRONIC OBSTRUCTIVE PULMONARY DISEASE
     Dosage: 136 MCG
     Route: 055
     Dates: start: 2010
  2. COREG [Concomitant]
     Dosage: 50 MG
     Route: 048
  3. FLUTICASONE [Concomitant]
     Route: 045
  4. LISINOPRIL [Concomitant]
     Dosage: 10 MG
     Route: 048
  5. LORTAB [Concomitant]
     Route: 048

REACTIONS (1)
  - Dyspnoea exertional [Not Recovered/Not Resolved]
